FAERS Safety Report 9940208 (Version 1)
Quarter: 2014Q1

REPORT INFORMATION
  Report Type: Report from Study
  Country: US (occurrence: US)
  Receive Date: 20140303
  Receipt Date: 20140303
  Transmission Date: 20141002
  Serious: No
  Sender: FDA-Public Use
  Company Number: US-ABBVIE-13P-163-1034671-00

PATIENT
  Age: 33 Year
  Sex: Male
  Weight: 81.72 kg

DRUGS (6)
  1. HUMIRA [Suspect]
     Indication: CROHN^S DISEASE
     Dates: start: 201209
  2. ADDERALL [Concomitant]
     Indication: PRODUCT USED FOR UNKNOWN INDICATION
  3. CALCIUM [Concomitant]
     Indication: PRODUCT USED FOR UNKNOWN INDICATION
  4. FISH OIL [Concomitant]
     Indication: PRODUCT USED FOR UNKNOWN INDICATION
  5. MULTIVITAMIN [Concomitant]
     Indication: PRODUCT USED FOR UNKNOWN INDICATION
  6. VITAMIN D [Concomitant]
     Indication: PRODUCT USED FOR UNKNOWN INDICATION

REACTIONS (3)
  - Visual acuity reduced [Not Recovered/Not Resolved]
  - Vision blurred [Not Recovered/Not Resolved]
  - Night blindness [Not Recovered/Not Resolved]
